FAERS Safety Report 8000920-5 (Version None)
Quarter: 2011Q4

REPORT INFORMATION
  Report Type: 
  Country: None (occurrence: None)
  Receive Date: 20111214
  Receipt Date: 20111128
  Transmission Date: 20120403
  Serious: Yes (Death, Life-Threatening, Hospitalization)
  Sender: FDA-Public Use
  Company Number: 1000025850

PATIENT
  Age: 78 Year
  Sex: Male

DRUGS (9)
  1. SYMBICORT (BUDESONIDE, FORMOTEROL FUMARATE) (BUDESONIDE, FORMOTEROL FU [Concomitant]
  2. THEOPHYLLINE [Concomitant]
  3. ALBUTEROL [Concomitant]
  4. PREDNISOLONE [Concomitant]
  5. MARCUMAR (PHENPROCOUMON) (PHENPROCOUMON) [Concomitant]
  6. BISOPROLOL FUMARATE [Concomitant]
  7. SPIRIVA (TIOTROPIUM BROMIDE) (TIOTROPIUM BROMIDE) [Concomitant]
  8. ROFLUMILAST (ROFLUMILAST) (500 MICROGRAM, TABLETS) [Suspect]
     Indication: CHRONIC OBSTRUCTIVE PULMONARY DISEASE
     Dosage: 500 MCG (500 MCG,1 IN 1 D),ORAL
     Route: 048
     Dates: start: 20111021, end: 20111108
  9. VALDOXAN (AGOMELATINE) (AGOMELATINE) [Concomitant]

REACTIONS (3)
  - CONDITION AGGRAVATED [None]
  - RESPIRATORY FAILURE [None]
  - CHRONIC OBSTRUCTIVE PULMONARY DISEASE [None]
